FAERS Safety Report 4657549-6 (Version None)
Quarter: 2005Q2

REPORT INFORMATION
  Report Type: 
  Country: None (occurrence: None)
  Receive Date: 20050405
  Receipt Date: 20050111
  Transmission Date: 20051028
  Serious: Yes (Hospitalization)
  Sender: FDA-Public Use
  Company Number: 2004097853

PATIENT
  Sex: Male

DRUGS (8)
  1. GEODON [Suspect]
     Indication: PSYCHOTIC DISORDER
     Dates: start: 20030318, end: 20040701
  2. OLANZAPINE (OLANZAPINE) [Concomitant]
  3. CITALOPRAM HYDROBROMIDE [Concomitant]
  4. BENZTROPINE MESYLATE [Concomitant]
  5. GABAPENTIN [Concomitant]
  6. CLONAZEPAM [Concomitant]
  7. DIPHENHYDRAMINE HCL [Concomitant]
  8. BEZATROPINE MESILATE [Concomitant]

REACTIONS (4)
  - ANXIETY [None]
  - EXTRAPYRAMIDAL DISORDER [None]
  - SALIVARY HYPERSECRETION [None]
  - TONGUE OEDEMA [None]
